FAERS Safety Report 9805797 (Version 1)
Quarter: 2014Q1

REPORT INFORMATION
  Report Type: Spontaneous
  Country: US (occurrence: None)
  Receive Date: 20140108
  Receipt Date: 20140108
  Transmission Date: 20141002
  Serious: Yes (Hospitalization)
  Sender: FDA-Public Use
  Company Number: None

PATIENT
  Age: 93 Year
  Sex: Male
  Weight: 73.2 kg

DRUGS (2)
  1. RISPERIDONE [Suspect]
     Indication: DEMENTIA
     Route: 048
     Dates: start: 20130817, end: 20130914
  2. RISPERIDONE [Suspect]
     Indication: DELUSION
     Route: 048
     Dates: start: 20130817, end: 20130914

REACTIONS (5)
  - Fatigue [None]
  - Somnolence [None]
  - Decreased appetite [None]
  - Blood lactic acid increased [None]
  - Hyperglycaemia [None]
